FAERS Safety Report 6644349-0 (Version None)
Quarter: 2010Q1

REPORT INFORMATION
  Report Type: 
  Country: None (occurrence: None)
  Receive Date: 20100322
  Receipt Date: 20100316
  Transmission Date: 20100710
  Serious: Yes (Death, Life-Threatening, Hospitalization)
  Sender: FDA-Public Use
  Company Number: DE-ROCHE-685589

PATIENT
  Sex: Female
  Weight: 65 kg

DRUGS (10)
  1. CAPECITABINE [Suspect]
     Indication: BREAST CANCER
     Route: 065
     Dates: start: 20100205
  2. BEVACIZUMAB [Suspect]
     Indication: BREAST CANCER
     Dosage: TEMPORARILY INTERRUPTED.
     Route: 042
     Dates: start: 20081229, end: 20090504
  3. BEVACIZUMAB [Suspect]
     Dosage: LAST DOSE PRIOR TO SAE: 19 OCTOBER 2009.
     Route: 042
     Dates: start: 20090615
  4. CYCLOPHOSPHAMIDE [Suspect]
     Indication: BREAST CANCER
     Route: 042
     Dates: start: 20081229
  5. DOXORUBICIN [Suspect]
     Indication: BREAST CANCER
     Route: 042
     Dates: start: 20081229
  6. DOCETAXEL [Suspect]
     Indication: BREAST CANCER
     Route: 042
     Dates: start: 20081229
  7. TRANSTEC [Suspect]
     Indication: DRUG USE FOR UNKNOWN INDICATION
     Route: 065
     Dates: start: 20100205, end: 20100209
  8. ARIXTRA [Concomitant]
     Dates: start: 20090501
  9. BISOPROLOL [Concomitant]
     Dates: start: 20090501
  10. RAMIPRIL [Concomitant]
     Dates: start: 20090501

REACTIONS (2)
  - INFECTION [None]
  - VOMITING [None]
